FAERS Safety Report 7120340-5 (Version None)
Quarter: 2010Q4

REPORT INFORMATION
  Report Type: 
  Country: None (occurrence: None)
  Receive Date: 20101124
  Receipt Date: 20101115
  Transmission Date: 20110411
  Serious: Yes (Other)
  Sender: FDA-Public Use
  Company Number: US-BIOGENIDEC-2010BI040068

PATIENT
  Age: 47 Year
  Sex: Male
  Weight: 92 kg

DRUGS (1)
  1. TYSABRI [Suspect]
     Indication: MULTIPLE SCLEROSIS
     Route: 042
     Dates: start: 20070222

REACTIONS (3)
  - INCISION SITE PAIN [None]
  - NEOPLASM MALIGNANT [None]
  - THROAT CANCER [None]
